FAERS Safety Report 6014831-8 (Version None)
Quarter: 2008Q4

REPORT INFORMATION
  Report Type: 
  Country: None (occurrence: None)
  Receive Date: 20081219
  Receipt Date: 20081205
  Transmission Date: 20090506
  Serious: Yes (Hospitalization)
  Sender: FDA-Public Use
  Company Number: JP-GENENTECH-272283

PATIENT
  Sex: Male
  Weight: 49.4 kg

DRUGS (9)
  1. BEVACIZUMAB [Suspect]
     Indication: COLON CANCER
     Dosage: 240 MG, Q2W
     Route: 041
  2. IRINOTECAN HCL [Suspect]
     Indication: COLON CANCER
     Route: 041
  3. TS-1 [Suspect]
     Indication: COLON CANCER
     Route: 041
  4. HANGE-SHASHIN-TO [Concomitant]
     Indication: DRUG USE FOR UNKNOWN INDICATION
  5. COPTIS [Concomitant]
     Indication: DRUG USE FOR UNKNOWN INDICATION
  6. GINSENG [Concomitant]
     Indication: DRUG USE FOR UNKNOWN INDICATION
  7. GLYCYRRHIZA GLABRA [Concomitant]
     Indication: DRUG USE FOR UNKNOWN INDICATION
  8. SCUTELLARIA BAICALENSIS [Concomitant]
     Indication: DRUG USE FOR UNKNOWN INDICATION
  9. LACTOBACILLUS BIFIDUS [Concomitant]
     Indication: DRUG USE FOR UNKNOWN INDICATION

REACTIONS (1)
  - PYREXIA [None]
